FAERS Safety Report 12280949 (Version 2)
Quarter: 2016Q2

REPORT INFORMATION
  Report Type: Spontaneous
  Country: JP (occurrence: JP)
  Receive Date: 20160419
  Receipt Date: 20160503
  Transmission Date: 20160815
  Serious: Yes (Disabling)
  Sender: FDA-Public Use
  Company Number: JP-ROCHE-1742749

PATIENT
  Sex: Male

DRUGS (4)
  1. LUCENTIS [Suspect]
     Active Substance: RANIBIZUMAB
     Indication: RETINAL VEIN OCCLUSION
     Dosage: LEFT EYE
     Route: 050
     Dates: start: 20160328
  2. LUCENTIS [Suspect]
     Active Substance: RANIBIZUMAB
     Indication: MACULAR OEDEMA
  3. BISOPROLOL [Concomitant]
     Active Substance: BISOPROLOL
  4. FLUORESCEIN [Concomitant]
     Active Substance: FLUORESCEIN

REACTIONS (3)
  - Retinal haemorrhage [Not Recovered/Not Resolved]
  - Retinal exudates [Not Recovered/Not Resolved]
  - Vitreous opacities [Unknown]
